FAERS Safety Report 5604365-4 (Version None)
Quarter: 2008Q1

REPORT INFORMATION
  Report Type: 
  Country: None (occurrence: None)
  Receive Date: 20080123
  Receipt Date: 20080123
  Transmission Date: 20080703
  Serious: Yes (Other)
  Sender: FDA-Public Use
  Company Number: None

PATIENT
  Age: 54 Year
  Sex: Male
  Weight: 83.4619 kg

DRUGS (3)
  1. MAXIPHEN-G 20MG PHENYLEPHRINE AMBI PHARMACEUTICALS [Suspect]
     Indication: INFLUENZA
     Dosage: 1 TAB 12 HOURS PO
     Route: 048
     Dates: start: 20080118, end: 20080120
  2. MAXIPHEN-G 20MG PHENYLEPHRINE AMBI PHARMACEUTICALS [Suspect]
     Indication: NASOPHARYNGITIS
     Dosage: 1 TAB 12 HOURS PO
     Route: 048
     Dates: start: 20080118, end: 20080120
  3. MAXIPHEN-G 20MG PHENYLEPHRINE AMBI PHARMACEUTICALS [Suspect]
     Indication: SINUS CONGESTION
     Dosage: 1 TAB 12 HOURS PO
     Route: 048
     Dates: start: 20080118, end: 20080120

REACTIONS (9)
  - ANXIETY [None]
  - DYSPHAGIA [None]
  - HALLUCINATION, VISUAL [None]
  - HOT FLUSH [None]
  - HYPERHIDROSIS [None]
  - INSOMNIA [None]
  - PANIC ATTACK [None]
  - PERIPHERAL COLDNESS [None]
  - RESTLESSNESS [None]
